FAERS Safety Report 8460316-9 (Version None)
Quarter: 2012Q2

REPORT INFORMATION
  Report Type: 
  Country: None (occurrence: None)
  Receive Date: 20120622
  Receipt Date: 20120614
  Transmission Date: 20120825
  Serious: Yes (Hospitalization)
  Sender: FDA-Public Use
  Company Number: DE-BRISTOL-MYERS SQUIBB COMPANY-16678930

PATIENT
  Age: 4 Decade
  Sex: Male

DRUGS (2)
  1. ABILIFY [Suspect]
     Indication: SCHIZOPHRENIA
     Dosage: TAKEN 3 WEEKS OF TREATMENT;
  2. CLOZAPINE [Suspect]

REACTIONS (2)
  - RESTLESSNESS [None]
  - SCHIZOPHRENIA [None]
